FAERS Safety Report 7502114-6 (Version None)
Quarter: 2011Q2

REPORT INFORMATION
  Report Type: 
  Country: None (occurrence: None)
  Receive Date: 20110523
  Receipt Date: 20110523
  Transmission Date: 20111010
  Serious: No
  Sender: FDA-Public Use
  Company Number: None

PATIENT
  Age: 53 Year
  Sex: Female
  Weight: 50.8029 kg

DRUGS (1)
  1. RECLAST [Suspect]
     Indication: OSTEOPOROSIS
     Dosage: ANNUALLY IV DRIP
     Route: 041
     Dates: start: 20101112, end: 20101112

REACTIONS (7)
  - FATIGUE [None]
  - RESPIRATORY DISORDER [None]
  - GENERAL PHYSICAL HEALTH DETERIORATION [None]
  - ASTHENIA [None]
  - PAIN [None]
  - BEDRIDDEN [None]
  - NECK PAIN [None]
